FAERS Safety Report 4950383-9 (Version None)
Quarter: 2006Q1

REPORT INFORMATION
  Report Type: 
  Country: None (occurrence: None)
  Receive Date: 20060315
  Receipt Date: 20060303
  Transmission Date: 20060701
  Serious: Yes (Life-Threatening, Hospitalization)
  Sender: FDA-Public Use
  Company Number: 2005154449

PATIENT
  Age: 82 Year
  Sex: Female

DRUGS (14)
  1. AZITHROMYCIN [Suspect]
     Indication: NASOPHARYNGITIS
     Dosage: 500 MG (500 MG, 1 IN 1 D), ORAL
     Route: 048
     Dates: start: 20050801
  2. SIGMART (NICORANDIL) [Concomitant]
  3. PILSICAINIDE HYDROCHLORIDE (PILSICAINIDE HYDROCHLORIDE) [Concomitant]
  4. ISOSORBIDE MONONITRATE [Concomitant]
  5. THIATON (TIQUIZIUM BROMIDE) [Concomitant]
  6. LOXOPROFEN SODIUM (LOXOPROFEN SODIUM) [Concomitant]
  7. ALFACALCIDOL (ALFACALCIDOL) [Concomitant]
  8. THYRADIN (THYROID) [Concomitant]
  9. LEBENIN (LACTOBACILLUS ACIDOPHILUS, LACTOBACILLIS BIFIUS, LYOPHILIZED, [Concomitant]
  10. TANNALBIN (ALBUMIN TANNATE) [Concomitant]
  11. JUVELA (TOCOPHEROL) [Concomitant]
  12. SELBEX (TEPRENONE) [Concomitant]
  13. ASPARA-CA (ASPARTATE CALCIUM) [Concomitant]
  14. NEUROVITAN (CYANOCOBALAMIN, OCTOTIAMINE, PYRIDOXINE HYDROCHLORIDE, RIB [Concomitant]

REACTIONS (11)
  - ACUTE RESPIRATORY DISTRESS SYNDROME [None]
  - CHILLS [None]
  - CONVULSION [None]
  - DRUG INEFFECTIVE [None]
  - INCORRECT DOSE ADMINISTERED [None]
  - LOSS OF CONSCIOUSNESS [None]
  - MALAISE [None]
  - NASOPHARYNGITIS [None]
  - OVERDOSE [None]
  - PULMONARY OEDEMA [None]
  - TREMOR [None]
